FAERS Safety Report 13292214 (Version 3)
Quarter: 2020Q3

REPORT INFORMATION
  Report Type: Report from Study
  Country: US (occurrence: US)
  Receive Date: 20170303
  Receipt Date: 20170308
  Transmission Date: 20201105
  Serious: Yes (Life-Threatening, Hospitalization)
  Sender: FDA-Public Use
  Company Number: US-JNJFOC-20170301339

PATIENT
  Age: 77 Year
  Sex: Female
  Weight: 90 kg

DRUGS (18)
  1. BACTROBAN [Concomitant]
     Active Substance: MUPIROCIN\MUPIROCIN CALCIUM
     Indication: STAPHYLOCOCCAL INFECTION
     Route: 061
     Dates: start: 20170206
  2. VITAMINE C [Concomitant]
     Active Substance: ASCORBIC ACID
     Indication: NUTRITIONAL SUPPLEMENTATION
     Route: 048
     Dates: start: 20091204
  3. HYDROCHLOROTHIAZIDE. [Concomitant]
     Active Substance: HYDROCHLOROTHIAZIDE
     Indication: ESSENTIAL HYPERTENSION
     Route: 048
     Dates: start: 2015
  4. ZOMETA [Concomitant]
     Active Substance: ZOLEDRONIC ACID
     Indication: PROPHYLAXIS
     Route: 042
     Dates: start: 20160902
  5. DOVONEX [Concomitant]
     Active Substance: CALCIPOTRIENE
     Indication: PSORIASIS
     Dosage: DOSE: 1 OTHER
     Route: 061
     Dates: start: 2010
  6. DEXAMETHASONE. [Concomitant]
     Active Substance: DEXAMETHASONE
     Indication: PLASMA CELL MYELOMA
     Route: 048
     Dates: start: 20160902
  7. DARATUMUMAB [Suspect]
     Active Substance: DARATUMUMAB
     Indication: PLASMA CELL MYELOMA
     Route: 042
     Dates: start: 20160902
  8. LENALIDOMIDE [Suspect]
     Active Substance: LENALIDOMIDE
     Indication: PLASMA CELL MYELOMA
     Dosage: DAYS 1?21 OF EACH 28 DAY CYCLE
     Route: 048
     Dates: start: 20160902, end: 20170227
  9. DESONIDE. [Concomitant]
     Active Substance: DESONIDE
     Indication: PSORIASIS
     Dosage: DOSE: 1 OTHER
     Route: 061
     Dates: start: 2010
  10. DIPHENHYDRAMINE HCL [Concomitant]
     Active Substance: DIPHENHYDRAMINE HYDROCHLORIDE
     Indication: RASH MACULAR
     Dosage: DOSE: 25?50 , CAPSULE(DOSE UNIT)
     Route: 048
     Dates: start: 20160921
  11. VITAMIN D3 [Concomitant]
     Active Substance: CHOLECALCIFEROL
     Indication: NUTRITIONAL SUPPLEMENTATION
     Route: 048
     Dates: start: 20091204
  12. BETAMETHASONE. [Concomitant]
     Active Substance: BETAMETHASONE
     Indication: PSORIASIS
     Dosage: DOSE: 1 OTHER
     Route: 061
     Dates: start: 2016
  13. DARATUMUMAB [Suspect]
     Active Substance: DARATUMUMAB
     Route: 042
  14. METOPROLOL SUCCINATE. [Concomitant]
     Active Substance: METOPROLOL SUCCINATE
     Indication: ESSENTIAL HYPERTENSION
     Route: 048
     Dates: start: 2015, end: 20170120
  15. TRAMADOL. [Concomitant]
     Active Substance: TRAMADOL
     Indication: PAIN
     Route: 048
     Dates: start: 2015
  16. CALCIUM [Concomitant]
     Active Substance: CALCIUM
     Indication: PROPHYLAXIS
     Route: 048
     Dates: start: 20161008
  17. VITAMIN B12 [Concomitant]
     Active Substance: CYANOCOBALAMIN
     Indication: ANAEMIA
     Route: 048
     Dates: start: 20170120
  18. METOPROLOL SUCCINATE. [Concomitant]
     Active Substance: METOPROLOL SUCCINATE
     Indication: ESSENTIAL HYPERTENSION
     Route: 048
     Dates: start: 20170127

REACTIONS (2)
  - Atrial fibrillation [Recovered/Resolved]
  - Anaemia [Not Recovered/Not Resolved]

NARRATIVE: CASE EVENT DATE: 20170203
